FAERS Safety Report 10537419 (Version 2)
Quarter: 2014Q4

REPORT INFORMATION
  Report Type: Spontaneous
  Country: DK (occurrence: DK)
  Receive Date: 20141023
  Receipt Date: 20141023
  Transmission Date: 20150529
  Serious: Yes (Disabling)
  Sender: FDA-Public Use
  Company Number: DK-009507513-1408DNK011131

PATIENT
  Age: 55 Year
  Sex: Male
  Weight: 99.3 kg

DRUGS (12)
  1. VITIS VITA K PLUS D [Concomitant]
     Indication: VITAMIN SUPPLEMENTATION
     Dosage: 1 DF, BID (MORNING AND EVENING)
     Route: 048
  2. JANUMET [Suspect]
     Active Substance: METFORMIN HYDROCHLORIDE\SITAGLIPTIN PHOSPHATE
     Indication: DIABETES MELLITUS
     Dosage: 1 DF, BID (MORNING AND EVENING), STRENGTH: 1000/50 MG
     Route: 048
     Dates: start: 20140213
  3. LANSOPRAZOLE. [Concomitant]
     Active Substance: LANSOPRAZOLE
     Indication: GASTRITIS
     Dosage: 15 MG, QD (MORNING)
     Route: 048
  4. OMEGA-3 MARINE TRIGLYCERIDES [Concomitant]
     Active Substance: FISH OIL
     Dosage: 1 TABLET, QD (EVENING)
     Route: 048
  5. PROCORALAN [Concomitant]
     Active Substance: IVABRADINE
     Indication: CARDIAC DISORDER
     Dosage: 7.5 MG, BID (MORNING AND EVENING)
     Route: 048
  6. ALLOPURINOL. [Concomitant]
     Active Substance: ALLOPURINOL
     Indication: GOUT
     Dosage: 100 MG, QD (MORNING)
     Route: 048
  7. SIMVASTATIN. [Concomitant]
     Active Substance: SIMVASTATIN
     Indication: BLOOD CHOLESTEROL
     Dosage: 80 MG, QD (EVENING)
     Route: 048
  8. DIURAL [Concomitant]
     Active Substance: FUROSEMIDE
     Indication: FLUID RETENTION
     Dosage: 40 MG, QD (MORNING)
     Route: 048
  9. CARVEDILOL. [Concomitant]
     Active Substance: CARVEDILOL
     Indication: CARDIAC FAILURE
     Dosage: 6.25 MG, BID (MORNING AND EVENING)
     Route: 048
  10. LISINOPRIL. [Concomitant]
     Active Substance: LISINOPRIL
     Indication: HYPERTENSION
     Dosage: 10 MG, QD (MORNING)
     Route: 048
  11. ASPIRIN. [Concomitant]
     Active Substance: ASPIRIN
     Indication: THROMBOSIS PROPHYLAXIS
     Dosage: 75 MG, QD (MORNING)
     Route: 048
  12. GLIMEPIRIDE. [Concomitant]
     Active Substance: GLIMEPIRIDE
     Indication: DIABETES MELLITUS
     Dosage: 2 MG, BID (MORNING AND EVENING)
     Route: 048

REACTIONS (8)
  - Hypotension [Not Recovered/Not Resolved]
  - Depression [Unknown]
  - Visual impairment [Not Recovered/Not Resolved]
  - Headache [Not Recovered/Not Resolved]
  - Feeling abnormal [Unknown]
  - Dizziness [Not Recovered/Not Resolved]
  - Feeling drunk [Unknown]
  - Abdominal discomfort [Unknown]

NARRATIVE: CASE EVENT DATE: 2014
